FAERS Safety Report 5885936-7 (Version None)
Quarter: 2008Q3

REPORT INFORMATION
  Report Type: 
  Country: None (occurrence: None)
  Receive Date: 20080917
  Receipt Date: 20080908
  Transmission Date: 20090109
  Serious: Yes (Death, Hospitalization)
  Sender: FDA-Public Use
  Company Number: DE-AMGEN-UK306290

PATIENT
  Age: 60 Year
  Sex: Female
  Weight: 66 kg

DRUGS (4)
  1. ARANESP [Suspect]
     Indication: ANAEMIA OF MALIGNANT DISEASE
     Route: 058
     Dates: start: 20071115, end: 20071220
  2. PACLITAXEL [Concomitant]
     Route: 042
     Dates: start: 20070816, end: 20071122
  3. CARBOPLATIN [Concomitant]
     Route: 042
     Dates: start: 20070816, end: 20071108
  4. GEMZAR [Concomitant]
     Route: 042
     Dates: start: 20071206, end: 20071213

REACTIONS (1)
  - JAUNDICE [None]
